FAERS Safety Report 12290274 (Version 1)
Quarter: 2016Q2

REPORT INFORMATION
  Report Type: Report from Study
  Country: AU (occurrence: AU)
  Receive Date: 20160421
  Receipt Date: 20160421
  Transmission Date: 20160815
  Serious: Yes (Hospitalization, Other)
  Sender: FDA-Public Use
  Company Number: PHHO2013AU019435

PATIENT
  Age: 57 Year
  Sex: Male
  Weight: 70 kg

DRUGS (38)
  1. BETAHISTINE [Concomitant]
     Active Substance: BETAHISTINE
     Indication: DIZZINESS
     Dosage: 16 MG, PRN
     Route: 048
     Dates: start: 20060101
  2. PANADOL [Concomitant]
     Active Substance: ACETAMINOPHEN
     Indication: PAIN
     Dosage: 665 MG, PRN
     Route: 048
     Dates: start: 20121106
  3. FENTANYL. [Concomitant]
     Active Substance: FENTANYL
     Indication: CHEST PAIN
     Dosage: 25, EVERY 3 DAYS
     Route: 062
     Dates: start: 20120801, end: 20121105
  4. ONDANSETRON [Concomitant]
     Active Substance: ONDANSETRON
     Indication: NAUSEA
     Dosage: 8 U, PRN
     Route: 048
     Dates: start: 20121211
  5. SITAGLIPTIN [Concomitant]
     Active Substance: SITAGLIPTIN
     Indication: DIABETES MELLITUS
     Dosage: 100 U, QID
     Route: 048
     Dates: start: 20120401
  6. VITAMIN B [Concomitant]
     Active Substance: VITAMIN B
     Indication: PRODUCT USED FOR UNKNOWN INDICATION
     Dosage: UNK
     Route: 048
     Dates: start: 20110101
  7. MAGNESIUM ASPARTATE [Concomitant]
     Active Substance: MAGNESIUM ASPARTATE
     Indication: MUSCLE SPASMS
     Dosage: 500 MG,
     Route: 048
     Dates: start: 20121106
  8. OMEPRAZOLE//OMEPRAZOLE SODIUM [Concomitant]
     Indication: GASTROOESOPHAGEAL REFLUX DISEASE
     Dosage: 20 MG, QID
     Route: 048
     Dates: start: 20121109, end: 20121126
  9. GABAPENTIN. [Concomitant]
     Active Substance: GABAPENTIN
     Indication: CHEST PAIN
     Dosage: 300 MG, TID
     Route: 048
     Dates: start: 20120801, end: 20121119
  10. MORPHINE [Concomitant]
     Active Substance: MORPHINE
     Indication: BREAKTHROUGH PAIN
     Dosage: PRN
     Route: 048
     Dates: start: 20121109, end: 20130116
  11. METFORMIN [Concomitant]
     Active Substance: METFORMIN HYDROCHLORIDE
     Indication: DIABETES MELLITUS
     Dosage: 1500 U, BID
     Route: 048
     Dates: start: 20110101
  12. BRICANYL [Concomitant]
     Active Substance: TERBUTALINE SULFATE
     Indication: ASTHMA
     Route: 065
     Dates: start: 20070101
  13. MOXONIDINE [Concomitant]
     Active Substance: MOXONIDINE
     Indication: DIZZINESS
     Dosage: 200 MG, QID
     Route: 048
     Dates: start: 20120401
  14. PANADOL [Concomitant]
     Active Substance: ACETAMINOPHEN
     Dosage: 665 MG, TID
     Route: 048
     Dates: start: 20121119, end: 20121119
  15. FENTANYL. [Concomitant]
     Active Substance: FENTANYL
     Dosage: 200 PRN
     Route: 062
     Dates: start: 20121109, end: 20121119
  16. PHENERGAN [Concomitant]
     Active Substance: PROMETHAZINE HYDROCHLORIDE
     Indication: NAUSEA
     Dosage: 10 PRN
     Route: 048
     Dates: start: 20121211
  17. PAZOPANIB [Suspect]
     Active Substance: PAZOPANIB
     Indication: RENAL CELL CARCINOMA
     Dosage: 800 MG, QD
     Route: 048
     Dates: start: 20121112, end: 20121222
  18. PHENERGAN [Concomitant]
     Active Substance: PROMETHAZINE HYDROCHLORIDE
     Indication: NAUSEA
     Dosage: 10 MG, PRN
     Route: 048
     Dates: start: 20121211
  19. MORPHINE [Concomitant]
     Active Substance: MORPHINE
     Dosage: 20 PRN
     Route: 048
     Dates: start: 20130117
  20. STEMETIL//PROCHLORPERAZINE [Concomitant]
     Active Substance: PROCHLORPERAZINE
     Indication: NAUSEA
     Dosage: 5 U, PRN
     Route: 048
     Dates: start: 20121126, end: 20121201
  21. SERETIDE [Concomitant]
     Active Substance: FLUTICASONE PROPIONATE\SALMETEROL XINAFOATE
     Indication: ASTHMA
     Dosage: UNK
     Route: 055
     Dates: start: 20070101
  22. FENTANYL. [Concomitant]
     Active Substance: FENTANYL
     Dosage: 37, TID
     Route: 062
     Dates: start: 20121105, end: 20121109
  23. METOCLOPRAMIDE. [Concomitant]
     Active Substance: METOCLOPRAMIDE
     Indication: NAUSEA
     Dosage: 10 PRN
     Route: 065
     Dates: start: 20121119, end: 20121126
  24. ATORVASTATIN [Concomitant]
     Active Substance: ATORVASTATIN
     Indication: BLOOD CHOLESTEROL DECREASED
     Dosage: 10 MG, QID
     Route: 048
     Dates: start: 20080101
  25. GABAPENTIN. [Concomitant]
     Active Substance: GABAPENTIN
     Dosage: 300 ONCE DAILY
     Route: 048
     Dates: start: 20130117
  26. PAZOPANIB [Suspect]
     Active Substance: PAZOPANIB
     Dosage: 400 MG, QD
     Route: 048
     Dates: start: 20121224, end: 20130108
  27. ASPIRIN//ACETYLSALICYLIC ACID [Concomitant]
     Active Substance: ASPIRIN
     Indication: ANTIPLATELET THERAPY
     Dosage: 100 U, QID
     Route: 048
     Dates: start: 20080101
  28. IRBESARTAN. [Concomitant]
     Active Substance: IRBESARTAN
     Indication: PRODUCT USED FOR UNKNOWN INDICATION
     Dosage: 300 MG, QID
     Route: 048
     Dates: start: 20020101
  29. PANADOL [Concomitant]
     Active Substance: ACETAMINOPHEN
     Dosage: 665 MG, PRN
     Route: 048
     Dates: start: 20121106
  30. PARACETAMOL [Concomitant]
     Active Substance: ACETAMINOPHEN
     Indication: PAIN
     Dosage: 500
     Route: 048
     Dates: start: 20120801, end: 20121119
  31. ASPIRIN//ACETYLSALICYLIC ACID [Concomitant]
     Active Substance: ASPIRIN
     Indication: PAIN
     Dosage: 300 PRN
     Route: 048
     Dates: start: 20120801, end: 20121108
  32. ASPIRIN//ACETYLSALICYLIC ACID [Concomitant]
     Active Substance: ASPIRIN
     Dosage: 100 U, QID
     Route: 048
  33. LERCANIDIPINE [Concomitant]
     Active Substance: LERCANIDIPINE
     Indication: PRODUCT USED FOR UNKNOWN INDICATION
     Dosage: 20 MG, QID
     Route: 048
     Dates: start: 20060101
  34. FENTANYL. [Concomitant]
     Active Substance: FENTANYL
     Dosage: 37, TID
     Route: 062
     Dates: start: 20121109
  35. LORAZEPAM. [Concomitant]
     Active Substance: LORAZEPAM
     Indication: RELAXATION THERAPY
     Dosage: 1 U, PRN
     Route: 048
     Dates: start: 20121109
  36. GABAPENTIN. [Concomitant]
     Active Substance: GABAPENTIN
     Dosage: 300 ONCE DAILY
     Route: 048
     Dates: start: 20121126, end: 20130116
  37. COLOXYL WITH SENNA [Concomitant]
     Active Substance: DOCUSATE\SENNOSIDES
     Indication: CONSTIPATION
     Dosage: 1 QD
     Route: 048
     Dates: start: 20121109, end: 20130116
  38. COLOXYL WITH SENNA [Concomitant]
     Active Substance: DOCUSATE\SENNOSIDES
     Dosage: 2 QD
     Route: 048
     Dates: start: 20130117

REACTIONS (1)
  - Spinal cord compression [Not Recovered/Not Resolved]

NARRATIVE: CASE EVENT DATE: 20130117
